FAERS Safety Report 8112733-4 (Version None)
Quarter: 2011Q4

REPORT INFORMATION
  Report Type: 
  Country: None (occurrence: None)
  Receive Date: 20111227
  Receipt Date: 20111117
  Transmission Date: 20120403
  Serious: Yes (Other)
  Sender: FDA-Public Use
  Company Number: PHEH2011US009060

PATIENT
  Age: 33 Year
  Sex: Female

DRUGS (9)
  1. MULTI-VITAMINS [Concomitant]
  2. GILENYA [Suspect]
     Indication: MULTIPLE SCLEROSIS
     Dosage: 0.5 MG, QD, ORAL
     Route: 048
     Dates: start: 20110420, end: 20111103
  3. VITAMIN D [Concomitant]
  4. OXYLITE TABLET [Concomitant]
  5. FISH OIL (FISH OIL) [Concomitant]
  6. SYNTHROID [Concomitant]
  7. LINOLEIC ACID (LINOLEIC ACID) [Concomitant]
  8. PROGESTERONE [Concomitant]
  9. ROYAL JELLY (ROYAL JELLY) [Concomitant]

REACTIONS (6)
  - HAEMOGLOBIN DECREASED [None]
  - LIVER FUNCTION TEST ABNORMAL [None]
  - ASPARTATE AMINOTRANSFERASE INCREASED [None]
  - ALANINE AMINOTRANSFERASE INCREASED [None]
  - FATIGUE [None]
  - HAEMATOCRIT INCREASED [None]
